FAERS Safety Report 12788858 (Version 1)
Quarter: 2016Q3

REPORT INFORMATION
  Report Type: Spontaneous
  Country: US (occurrence: US)
  Receive Date: 20160928
  Receipt Date: 20160928
  Transmission Date: 20161109
  Serious: Yes (Hospitalization)
  Sender: FDA-Public Use
  Company Number: US-BIOGEN-2016BI00296185

PATIENT
  Sex: Female

DRUGS (2)
  1. AVONEX [Suspect]
     Active Substance: INTERFERON BETA-1A
     Indication: MULTIPLE SCLEROSIS
     Route: 065
     Dates: start: 19980102, end: 20100127
  2. AVONEX [Suspect]
     Active Substance: INTERFERON BETA-1A
     Route: 065
     Dates: start: 20100310

REACTIONS (13)
  - Malaise [Unknown]
  - Mobility decreased [Unknown]
  - Blood test abnormal [Unknown]
  - Decreased appetite [Unknown]
  - Abasia [Unknown]
  - Feeding disorder [Unknown]
  - Dehydration [Unknown]
  - Peripheral swelling [Unknown]
  - Asthenia [Not Recovered/Not Resolved]
  - Thinking abnormal [Unknown]
  - Blood iron decreased [Unknown]
  - Blood potassium decreased [Unknown]
  - Impaired self-care [Unknown]
